FAERS Safety Report 18526312 (Version 3)
Quarter: 2021Q1

REPORT INFORMATION
  Report Type: Spontaneous
  Country: US (occurrence: US)
  Receive Date: 20201120
  Receipt Date: 20210125
  Transmission Date: 20210419
  Serious: No
  Sender: FDA-Public Use
  Company Number: US-BIOGEN-2020BI00945709

PATIENT
  Age: 50 Year
  Sex: Female

DRUGS (1)
  1. TYSABRI [Suspect]
     Active Substance: NATALIZUMAB
     Indication: MULTIPLE SCLEROSIS
     Route: 065
     Dates: start: 20180220

REACTIONS (8)
  - Feeling abnormal [Not Recovered/Not Resolved]
  - Coronavirus infection [Unknown]
  - Optic neuritis [Unknown]
  - Product dose omission issue [Unknown]
  - Stress [Unknown]
  - Malaise [Unknown]
  - Trigeminal neuralgia [Unknown]
  - Fatigue [Unknown]

NARRATIVE: CASE EVENT DATE: 202010
